FAERS Safety Report 7279730-2 (Version None)
Quarter: 2011Q1

REPORT INFORMATION
  Report Type: 
  Country: None (occurrence: None)
  Receive Date: 20110208
  Receipt Date: 20110203
  Transmission Date: 20110831
  Serious: Yes (Other)
  Sender: FDA-Public Use
  Company Number: US-PFIZER INC-2010167853

PATIENT
  Sex: Male
  Weight: 113.38 kg

DRUGS (7)
  1. DILANTIN-125 [Suspect]
     Indication: CONVULSION
     Dosage: 400 MG, UNK
     Route: 048
  2. KEPPRA [Suspect]
     Indication: CONVULSION
     Dates: start: 20100606, end: 20100616
  3. FOLIC ACID [Concomitant]
     Dosage: UNK
  4. METHOTREXATE [Concomitant]
     Dosage: UNK
  5. PHENYTOIN [Suspect]
     Indication: CONVULSION
  6. TOPAMAX [Suspect]
     Indication: CONVULSION
     Dosage: FREQUENCY: 2X/DAY,
     Dates: start: 20100101
  7. PRAVASTATIN [Concomitant]
     Dosage: UNK

REACTIONS (7)
  - ANTICONVULSANT DRUG LEVEL DECREASED [None]
  - SUICIDAL IDEATION [None]
  - THERMAL BURN [None]
  - ATAXIA [None]
  - TOXICITY TO VARIOUS AGENTS [None]
  - BALANCE DISORDER [None]
  - DEPRESSION [None]
